FAERS Safety Report 4965098-0 (Version None)
Quarter: 2006Q2

REPORT INFORMATION
  Report Type: 
  Country: None (occurrence: None)
  Receive Date: 20060406
  Receipt Date: 20060328
  Transmission Date: 20061013
  Serious: Yes (Hospitalization)
  Sender: FDA-Public Use
  Company Number: PHEH2006US04330

PATIENT
  Age: 79 Year
  Sex: Female
  Weight: 78.911 kg

DRUGS (3)
  1. MIOCHOL-E [Suspect]
     Indication: MIOSIS
     Dosage: UNK, ONCE/SINGLE
     Dates: start: 20040308, end: 20040308
  2. VERAPAMIL [Concomitant]
     Dates: end: 20040301
  3. TOPROL-XL [Concomitant]
     Dosage: 12.5 MG, QD
     Dates: start: 20040301

REACTIONS (15)
  - ANAEMIA [None]
  - APHASIA [None]
  - ARTERIOGRAM CAROTID ABNORMAL [None]
  - CAROTID ARTERY STENOSIS [None]
  - CEREBRAL ARTERY STENOSIS [None]
  - CEREBROVASCULAR ACCIDENT [None]
  - CHEST X-RAY ABNORMAL [None]
  - COMPUTERISED TOMOGRAM ABNORMAL [None]
  - DYSARTHRIA [None]
  - FACIAL PALSY [None]
  - HAEMATOCRIT DECREASED [None]
  - HAEMOGLOBIN DECREASED [None]
  - HEMIPARESIS [None]
  - NUCLEAR MAGNETIC RESONANCE IMAGING BRAIN ABNORMAL [None]
  - PULMONARY GRANULOMA [None]
